FAERS Safety Report 7899079 (Version 2)
Quarter: 2013Q2

REPORT INFORMATION
  Report Type: Spontaneous
  Country: US (occurrence: US)
  Receive Date: 20110414
  Receipt Date: 20130628
  Transmission Date: 20140414
  Serious: Yes (Hospitalization)
  Sender: FDA-Public Use
  Company Number: US-ROCHE-769174

PATIENT
  Age: 57 Year
  Sex: Female

DRUGS (1)
  1. ORLISTAT [Suspect]
     Indication: WEIGHT DECREASED
     Route: 065

REACTIONS (1)
  - Leukocytoclastic vasculitis [Recovered/Resolved]
